FAERS Safety Report 4313135-9 (Version None)
Quarter: 2004Q1

REPORT INFORMATION
  Report Type: 
  Country: None (occurrence: None)
  Receive Date: 20040304
  Receipt Date: 20040218
  Transmission Date: 20041129
  Serious: Yes (Hospitalization)
  Sender: FDA-Public Use
  Company Number: EWC040137653

PATIENT
  Age: 60 Year
  Sex: Male

DRUGS (6)
  1. HUMULIN N [Suspect]
     Indication: DIABETES MELLITUS NON-INSULIN-DEPENDENT
     Dosage: 30 IU
     Dates: start: 20030401, end: 20031113
  2. AMARYL [Concomitant]
  3. FULSEED [Concomitant]
  4. HIMETIN(CIMETIDINE) [Concomitant]
  5. RIZE(CLOTIAZEPAM) [Concomitant]
  6. EMTHYCOBAL(MECOBALAMIN) [Concomitant]

REACTIONS (4)
  - DRUG HYPERSENSITIVITY [None]
  - FALL [None]
  - SHOCK [None]
  - URTICARIA GENERALISED [None]
